FAERS Safety Report 7474235-8 (Version None)
Quarter: 2011Q2

REPORT INFORMATION
  Report Type: 
  Country: None (occurrence: None)
  Receive Date: 20110511
  Receipt Date: 20110504
  Transmission Date: 20111010
  Serious: Yes (Death, Other)
  Sender: FDA-Public Use
  Company Number: GB-GENZYME-FLUD-1001126

PATIENT
  Age: 15 Month

DRUGS (6)
  1. CAMPATH [Suspect]
     Indication: BONE MARROW CONDITIONING REGIMEN
  2. FLUDARA [Suspect]
     Indication: OMENN SYNDROME
     Dosage: 150 MG/M2, UNK
     Route: 065
  3. TREOSULFAN [Suspect]
     Indication: OMENN SYNDROME
     Dosage: 36 G/M2, QDX3
     Route: 065
  4. CAMPATH [Suspect]
     Indication: OMENN SYNDROME
     Dosage: UNK
     Route: 065
  5. FLUDARA [Suspect]
     Indication: BONE MARROW CONDITIONING REGIMEN
  6. TREOSULFAN [Suspect]
     Indication: BONE MARROW CONDITIONING REGIMEN

REACTIONS (5)
  - GRAFT VERSUS HOST DISEASE [None]
  - ACUTE GRAFT VERSUS HOST DISEASE IN LIVER [None]
  - ACUTE GRAFT VERSUS HOST DISEASE IN INTESTINE [None]
  - CEREBRAL INFARCTION [None]
  - CONVULSION [None]
